FAERS Safety Report 19064280 (Version 1)
Quarter: 2021Q1

REPORT INFORMATION
  Report Type: Spontaneous
  Country: US (occurrence: US)
  Receive Date: 20210326
  Receipt Date: 20210326
  Transmission Date: 20210420
  Serious: No
  Sender: FDA-Public Use
  Company Number: US-SA-2021SA099780

PATIENT
  Age: 67 Year
  Sex: Female

DRUGS (1)
  1. DUPIXENT [Suspect]
     Active Substance: DUPILUMAB
     Indication: ECZEMA
     Dosage: 1 DF, QOW
     Route: 065

REACTIONS (7)
  - Confusional state [Unknown]
  - Dry skin [Unknown]
  - Illiteracy [Unknown]
  - Drug ineffective [Unknown]
  - Pruritus [Unknown]
  - Memory impairment [Unknown]
  - Rash [Unknown]
